FAERS Safety Report 14569184 (Version 1)
Quarter: 2018Q1

REPORT INFORMATION
  Report Type: Spontaneous
  Country: IN (occurrence: IN)
  Receive Date: 20180223
  Receipt Date: 20180223
  Transmission Date: 20180509
  Serious: Yes (Death, Other)
  Sender: FDA-Public Use
  Company Number: IN-JAZZ-2018-IN-003037

PATIENT
  Age: 5 Year
  Sex: Female

DRUGS (1)
  1. DEFITELIO [Suspect]
     Active Substance: DEFIBROTIDE SODIUM
     Indication: VENOOCCLUSIVE DISEASE
     Dosage: 6.25 MG/KG, EVERY 6 HOURS
     Route: 042

REACTIONS (3)
  - Multiple organ dysfunction syndrome [Fatal]
  - Incorrect drug administration duration [Unknown]
  - Disease progression [Unknown]
